FAERS Safety Report 10057272 (Version 1)
Quarter: 2014Q2

REPORT INFORMATION
  Report Type: Spontaneous
  Country: US (occurrence: US)
  Receive Date: 20140403
  Receipt Date: 20140403
  Transmission Date: 20141212
  Serious: Yes (Other)
  Sender: FDA-Public Use
  Company Number: US-BIOMARINAP-US-2014-102941

PATIENT
  Sex: Male
  Weight: 93 kg

DRUGS (1)
  1. ALDURAZYME [Suspect]
     Indication: MUCOPOLYSACCHARIDOSIS I
     Dosage: 55 MG, QW
     Route: 041
     Dates: start: 20050120

REACTIONS (2)
  - Astigmatism [Unknown]
  - Eye pain [Unknown]
